FAERS Safety Report 5261385-X (Version None)
Quarter: 2007Q1

REPORT INFORMATION
  Report Type: 
  Country: None (occurrence: None)
  Receive Date: 20070307
  Receipt Date: 20070227
  Transmission Date: 20070707
  Serious: Yes (Hospitalization, Other)
  Sender: FDA-Public Use
  Company Number: 163-21880-07020027

PATIENT
  Age: 73 Year
  Sex: Male

DRUGS (11)
  1. REVLIMID [Suspect]
     Indication: MYELODYSPLASTIC SYNDROME
     Dosage: 10 MG, 1 IN 1 D, ORAL
     Route: 048
     Dates: start: 20061001, end: 20070101
  2. REVLIMID [Suspect]
     Indication: MYELODYSPLASTIC SYNDROME
     Dosage: 10 MG, 1 IN 1 D, ORAL
     Route: 048
     Dates: start: 20070122
  3. SODIUM PHOSPHATES [Concomitant]
  4. ZYPREXA [Concomitant]
  5. TRANXENE [Concomitant]
  6. OMEPRAZOLE [Concomitant]
  7. REMERON [Concomitant]
  8. PREDNISOLONE (PREDNISOLONE) (SUSPENSION) [Concomitant]
  9. VICODIN [Concomitant]
  10. MORPHINE [Concomitant]
  11. PREDNISONE TAB [Concomitant]

REACTIONS (4)
  - HAEMATOCRIT DECREASED [None]
  - HAEMOGLOBIN DECREASED [None]
  - PAROTITIS [None]
  - PLATELET COUNT DECREASED [None]
